FAERS Safety Report 11026977 (Version 2)
Quarter: 2015Q2

REPORT INFORMATION
  Report Type: Spontaneous
  Country: US (occurrence: US)
  Receive Date: 20150414
  Receipt Date: 20150525
  Transmission Date: 20150821
  Serious: No
  Sender: FDA-Public Use
  Company Number: US-JNJFOC-20121211125

PATIENT
  Sex: Female

DRUGS (5)
  1. ORTHO TRI CYCLEN LO [Suspect]
     Active Substance: ETHINYL ESTRADIOL\NORGESTIMATE
     Indication: CONTRACEPTION
     Dosage: TREATMENT A, FROM DAYS 1 TO 21
     Route: 065
  2. EFAVIRENZ [Interacting]
     Active Substance: EFAVIRENZ
     Indication: PRODUCT USED FOR UNKNOWN INDICATION
     Dosage: TREATMENT C; FROM DAYS 57-70
     Route: 065
  3. ORTHO CYCLEN [Suspect]
     Active Substance: ETHINYL ESTRADIOL\NORGESTIMATE
     Indication: CONTRACEPTION
     Dosage: TREATMENT B, FIRST CYCLE FROM DAYS 29 TO 56
     Route: 048
  4. ORTHO CYCLEN [Suspect]
     Active Substance: ETHINYL ESTRADIOL\NORGESTIMATE
     Indication: CONTRACEPTION
     Dosage: TREATMENT D; FROM DAYS 71 TO 77
     Route: 048
  5. ORTHO CYCLEN [Suspect]
     Active Substance: ETHINYL ESTRADIOL\NORGESTIMATE
     Indication: CONTRACEPTION
     Dosage: TREATMENT C, SECOND CYCLE, PERIOD 3, DAYS 57-77
     Route: 048

REACTIONS (3)
  - Drug interaction [Unknown]
  - Metrorrhagia [Unknown]
  - Headache [Unknown]
